FAERS Safety Report 21183024 (Version 1)
Quarter: 2022Q3

REPORT INFORMATION
  Report Type: Report from Study
  Country: EG (occurrence: EG)
  Receive Date: 20220808
  Receipt Date: 20220808
  Transmission Date: 20221027
  Serious: Yes (Other)
  Sender: FDA-Public Use
  Company Number: EG-NOVARTISPH-NVSC2022EG177113

PATIENT
  Age: 15 Year
  Sex: Female

DRUGS (6)
  1. OMNITROPE [Suspect]
     Active Substance: SOMATROPIN
     Indication: Growth hormone deficiency
     Dosage: 1.6 MG, QD
     Route: 058
     Dates: start: 20200924
  2. OMNITROPE [Suspect]
     Active Substance: SOMATROPIN
     Dosage: 2.6 MG, QD
     Route: 058
  3. ZYRTEC [Concomitant]
     Active Substance: CETIRIZINE HYDROCHLORIDE
     Indication: Hypersensitivity
     Dosage: 5 CENTIMETRE, QD
     Route: 065
  4. FLUTICASONE FUROATE [Concomitant]
     Active Substance: FLUTICASONE FUROATE
     Indication: Hypersensitivity
     Dosage: UNK, (PRP USED FOR 2 WEEKS ONLY)
     Route: 065
  5. PHENADONE [Concomitant]
     Indication: Hypersensitivity
     Dosage: UNK, (USED FOR 1 WEEK OR 10 DAYS ON PRP)
     Route: 065
  6. SERETIDE [Concomitant]
     Active Substance: FLUTICASONE PROPIONATE\SALMETEROL XINAFOATE
     Indication: Hypersensitivity
     Dosage: 2 PUFFS/DAY AT MORNING AND 2 PUFFS/DAY AT NIGHT IN SUMMER (SINCE SHE WAS 4 YEARS OLD)
     Route: 065

REACTIONS (8)
  - Serum ferritin decreased [Recovering/Resolving]
  - Pallor [Recovering/Resolving]
  - Cough [Not Recovered/Not Resolved]
  - Vitamin D decreased [Recovering/Resolving]
  - Lethargy [Recovering/Resolving]
  - Pyrexia [Not Recovered/Not Resolved]
  - Wheezing [Not Recovered/Not Resolved]
  - Drug ineffective [Not Recovered/Not Resolved]

NARRATIVE: CASE EVENT DATE: 20211201
